FAERS Safety Report 6266307-0 (Version None)
Quarter: 2009Q3

REPORT INFORMATION
  Report Type: 
  Country: None (occurrence: None)
  Receive Date: 20090713
  Receipt Date: 20090707
  Transmission Date: 20100115
  Serious: Yes (Death)
  Sender: FDA-Public Use
  Company Number: PHHY2009IT28404

PATIENT

DRUGS (2)
  1. ENTACAPONE [Suspect]
     Indication: DRUG EFFECT DECREASED
     Dosage: 3 DF, QD
     Route: 048
  2. LEVODOPA [Concomitant]
     Indication: PARKINSON'S DISEASE
     Dosage: UNK

REACTIONS (1)
  - MYOCARDIAL INFARCTION [None]
